FAERS Safety Report 9454638 (Version 3)
Quarter: 2013Q4

REPORT INFORMATION
  Report Type: Spontaneous
  Country: US (occurrence: US)
  Receive Date: 20130812
  Receipt Date: 20131021
  Transmission Date: 20140711
  Serious: Yes (Other)
  Sender: FDA-Public Use
  Company Number: US-009507513-1308USA003751

PATIENT
  Age: 23 Year
  Sex: Female
  Weight: 124.72 kg

DRUGS (2)
  1. IMPLANON [Suspect]
     Indication: CONTRACEPTION
     Dosage: 1 ROD
     Route: 059
     Dates: start: 201102
  2. PROVENTIL [Concomitant]

REACTIONS (5)
  - Abortion spontaneous [Unknown]
  - Unintended pregnancy [Unknown]
  - Medical device complication [Not Recovered/Not Resolved]
  - Medical device complication [Not Recovered/Not Resolved]
  - Medical device complication [Unknown]
